FAERS Safety Report 6059399-5 (Version None)
Quarter: 2009Q1

REPORT INFORMATION
  Report Type: 
  Country: None (occurrence: None)
  Receive Date: 20090128
  Receipt Date: 20090128
  Transmission Date: 20090719
  Serious: Yes (Hospitalization)
  Sender: FDA-Public Use
  Company Number: None

PATIENT
  Age: 64 Year
  Sex: Female
  Weight: 61.2356 kg

DRUGS (2)
  1. PREDNISONE [Suspect]
     Indication: BACK PAIN
     Dosage: MULTIPLE DAYS-MAYBE 6?
     Dates: start: 20080828, end: 20080905
  2. PREDNISONE [Suspect]
     Indication: INJURY
     Dosage: MULTIPLE DAYS-MAYBE 6?
     Dates: start: 20080828, end: 20080905

REACTIONS (1)
  - DIABETIC KETOACIDOSIS [None]
